FAERS Safety Report 5045800-2 (Version None)
Quarter: 2006Q2

REPORT INFORMATION
  Report Type: 
  Country: None (occurrence: None)
  Receive Date: 20060601
  Receipt Date: 20060207
  Transmission Date: 20061013
  Serious: No
  Sender: FDA-Public Use
  Company Number: 2005-BP-20406BP

PATIENT
  Age: 79 Year
  Sex: Female

DRUGS (13)
  1. SPIRIVA [Suspect]
     Indication: CHRONIC OBSTRUCTIVE PULMONARY DISEASE
     Dosage: 18 MCG (18 MCG, 1 CAP DAILY), IH
     Route: 055
     Dates: start: 20050901
  2. SPIRIVA [Suspect]
     Indication: EMPHYSEMA
     Dosage: 18 MCG (18 MCG, 1 CAP DAILY), IH
     Route: 055
     Dates: start: 20050901
  3. SPIRIVA [Suspect]
  4. ALBUTEROL SPIROS [Concomitant]
  5. ADVAIR (SERETIDE /01420901/) [Concomitant]
  6. DILTIAZEM [Concomitant]
  7. PRILOSEC [Concomitant]
  8. VITAMINS [Concomitant]
  9. ASA (AVETYLSALICYLIC ACID) [Concomitant]
  10. HYDROCHLOROTHIAZIDE [Concomitant]
  11. ASCORBIC ACID [Concomitant]
  12. CALCIUM GLUCONATE [Concomitant]
  13. OXYGEN (OXYGEN) [Concomitant]

REACTIONS (1)
  - DYSPNOEA [None]
